FAERS Safety Report 5898394-3 (Version None)
Quarter: 2008Q3

REPORT INFORMATION
  Report Type: 
  Country: None (occurrence: None)
  Receive Date: 20080925
  Receipt Date: 20071113
  Transmission Date: 20090109
  Serious: No
  Sender: FDA-Public Use
  Company Number: A0688014A

PATIENT
  Age: 20 Year
  Sex: Male
  Weight: 55.9 kg

DRUGS (3)
  1. WELLBUTRIN XL [Suspect]
     Indication: DEPRESSION
     Dosage: 150MG PER DAY
     Route: 048
     Dates: start: 20071012, end: 20071015
  2. SYNTHROID [Concomitant]
  3. MULTI-VITAMINS [Concomitant]

REACTIONS (3)
  - CRYING [None]
  - DEPRESSION [None]
  - FEELING ABNORMAL [None]
